FAERS Safety Report 4466703-8 (Version None)
Quarter: 2004Q4

REPORT INFORMATION
  Report Type: 
  Country: None (occurrence: None)
  Receive Date: 20041001
  Receipt Date: 20041001
  Transmission Date: 20050328
  Serious: Yes (Other)
  Sender: FDA-Public Use
  Company Number: None

PATIENT
  Age: 22 Year
  Sex: Male
  Weight: 60.782 kg

DRUGS (1)
  1. ZOLOFT [Suspect]
     Indication: DEPRESSION
     Dosage: 20 MG ONCE A DAY ORAL
     Route: 048
     Dates: start: 20040915, end: 20040930

REACTIONS (4)
  - AGGRESSION [None]
  - ANGER [None]
  - CRYING [None]
  - FEELING ABNORMAL [None]
